FAERS Safety Report 6469391-4 (Version None)
Quarter: 2009Q4

REPORT INFORMATION
  Report Type: 
  Country: None (occurrence: None)
  Receive Date: 20091203
  Receipt Date: 20071119
  Transmission Date: 20100525
  Serious: Yes (Hospitalization)
  Sender: FDA-Public Use
  Company Number: US-ELI_LILLY_AND_COMPANY-US200710000183

PATIENT
  Sex: Male
  Weight: 111.11 kg

DRUGS (15)
  1. BYETTA [Suspect]
     Indication: TYPE 2 DIABETES MELLITUS
     Dosage: 5 UG, 2/D
     Route: 058
     Dates: start: 20060615, end: 20060917
  2. BYETTA [Suspect]
     Dosage: 10 UG, 2/D
     Route: 058
     Dates: start: 20060918
  3. HUMULIN 70/30 [Concomitant]
     Indication: DIABETES MELLITUS
     Dosage: 30 U, 2/D
     Dates: start: 20040101, end: 20070101
  4. HUMULIN 70/30 [Concomitant]
     Dosage: 16 U, 2/D
     Dates: start: 20070801
  5. GLIPIZIDE [Concomitant]
     Indication: DIABETES MELLITUS
     Dosage: 10 MG, UNK
     Dates: start: 20000101
  6. ATENOLOL [Concomitant]
     Indication: BLOOD PRESSURE INCREASED
  7. OMACOR [Concomitant]
     Indication: HYPERLIPIDAEMIA
     Dosage: UNK, 2/D
     Route: 048
     Dates: start: 20060605
  8. TORSEMIDE [Concomitant]
     Indication: FLUID RETENTION
  9. LIPITOR [Concomitant]
     Indication: BLOOD CHOLESTEROL
  10. AMLODIPINE [Concomitant]
  11. ALTACE [Concomitant]
  12. RIMONABANT [Concomitant]
     Indication: WEIGHT DECREASED
     Dates: start: 20070101
  13. GLUCOSAMINE [Concomitant]
     Indication: ARTHRITIS
     Dosage: UNK, DAILY (1/D)
     Route: 048
     Dates: start: 20060717
  14. CHONDROITIN [Concomitant]
     Indication: ARTHRITIS
     Dosage: UNK, DAILY (1/D)
     Route: 048
     Dates: start: 20060717
  15. ASPIRIN [Concomitant]
     Indication: CORONARY ANGIOPLASTY
     Dosage: UNK, DAILY (1/D)
     Route: 048
     Dates: start: 20060605

REACTIONS (12)
  - ASTHENIA [None]
  - BLOOD GLUCOSE DECREASED [None]
  - CORONARY ARTERY DISEASE [None]
  - DECREASED APPETITE [None]
  - DIZZINESS [None]
  - DYSGEUSIA [None]
  - FEELING JITTERY [None]
  - HYPERHIDROSIS [None]
  - HYPOAESTHESIA ORAL [None]
  - PARAESTHESIA ORAL [None]
  - PRESYNCOPE [None]
  - WEIGHT DECREASED [None]
